FAERS Safety Report 5517713-0 (Version None)
Quarter: 2007Q4

REPORT INFORMATION
  Report Type: 
  Country: None (occurrence: None)
  Receive Date: 20071113
  Receipt Date: 20071025
  Transmission Date: 20080405
  Serious: Yes (Life-Threatening, Other)
  Sender: FDA-Public Use
  Company Number: VER_00077_2007

PATIENT
  Sex: Female
  Weight: 108.8633 kg

DRUGS (1)
  1. EPINEPHRINE [Suspect]
     Indication: ANAPHYLACTIC REACTION
     Dosage: INTRAMUSCULAR
     Route: 030
     Dates: start: 20070808

REACTIONS (1)
  - DEVICE FAILURE [None]
